FAERS Safety Report 5418290-5 (Version None)
Quarter: 2007Q3

REPORT INFORMATION
  Report Type: 
  Country: None (occurrence: None)
  Receive Date: 20070817
  Receipt Date: 20070809
  Transmission Date: 20080115
  Serious: Yes (Other)
  Sender: FDA-Public Use
  Company Number: JP-ASTRAZENECA-2007AP04879

PATIENT
  Age: 76 Year
  Sex: Male

DRUGS (16)
  1. XYLOCAINE [Suspect]
     Indication: LOCAL ANAESTHESIA
     Route: 061
  2. ATROPINE SULFATE [Concomitant]
     Indication: PREMEDICATION
     Route: 030
  3. ATROPINE SULFATE [Concomitant]
     Route: 030
  4. PENTAZOCINE LACTATE [Concomitant]
     Indication: PREMEDICATION
     Route: 030
  5. PENTAZOCINE LACTATE [Concomitant]
     Route: 030
  6. MIDAZOLAM HCL [Concomitant]
     Indication: INDUCTION OF ANAESTHESIA
  7. MIDAZOLAM HCL [Concomitant]
  8. VECURONIUM BROMIDE [Concomitant]
     Indication: INDUCTION OF ANAESTHESIA
  9. VECURONIUM BROMIDE [Concomitant]
  10. OXYGEN FOR MEDICAL USE [Concomitant]
     Indication: MAINTENANCE OF ANAESTHESIA
     Route: 055
  11. OXYGEN FOR MEDICAL USE [Concomitant]
     Route: 055
  12. NITROUS OXIDE [Concomitant]
     Indication: MAINTENANCE OF ANAESTHESIA
     Route: 055
  13. NITROUS OXIDE [Concomitant]
     Route: 055
  14. SEVOFLURANE [Concomitant]
     Indication: MAINTENANCE OF ANAESTHESIA
     Route: 055
  15. VERAPAMIL HYDROCHLORIDE [Concomitant]
     Indication: PROPHYLAXIS
     Route: 048
  16. DISOPYRAMIDE PHOSPHATE [Concomitant]
     Indication: PROPHYLAXIS
     Route: 048

REACTIONS (3)
  - ATRIAL FIBRILLATION [None]
  - NODAL RHYTHM [None]
  - SUPRAVENTRICULAR TACHYCARDIA [None]
